FAERS Safety Report 4399839-0 (Version None)
Quarter: 2004Q3

REPORT INFORMATION
  Report Type: 
  Country: None (occurrence: None)
  Receive Date: 20040714
  Receipt Date: 20040624
  Transmission Date: 20050211
  Serious: Yes (Other)
  Sender: FDA-Public Use
  Company Number: JP_040603577

PATIENT
  Age: 25 Month
  Sex: Female

DRUGS (5)
  1. ONCOVIN [Suspect]
     Indication: NEUROBLASTOMA
  2. CYCLOPHOSPHAMIDE [Concomitant]
  3. ETOPOSIDE [Concomitant]
  4. PIRARUBICIN [Concomitant]
  5. CISPLATIN [Concomitant]

REACTIONS (5)
  - DRUG TOXICITY [None]
  - FUNGAL INFECTION [None]
  - HAEMATOCHEZIA [None]
  - MUCOUS MEMBRANE DISORDER [None]
  - NEPHRECTOMY [None]
